FAERS Safety Report 6563914-2 (Version None)
Quarter: 2010Q1

REPORT INFORMATION
  Report Type: 
  Country: None (occurrence: None)
  Receive Date: 20100131
  Receipt Date: 20100118
  Transmission Date: 20100710
  Serious: Yes (Life-Threatening, Hospitalization)
  Sender: FDA-Public Use
  Company Number: JP-JNJFOC-20091006313

PATIENT
  Sex: Female
  Weight: 74 kg

DRUGS (19)
  1. REMICADE [Suspect]
     Indication: RHEUMATOID ARTHRITIS
     Dosage: 9 INFUSIONS ON UNSPECIFIED DATES
     Route: 042
     Dates: end: 20081128
  2. REMICADE [Suspect]
     Route: 042
     Dates: end: 20081128
  3. REMICADE [Suspect]
     Route: 042
     Dates: end: 20081128
  4. REMICADE [Suspect]
     Route: 042
     Dates: end: 20081128
  5. REMICADE [Suspect]
     Route: 042
     Dates: end: 20081128
  6. REMICADE [Suspect]
     Route: 042
     Dates: end: 20081128
  7. REMICADE [Suspect]
     Route: 042
     Dates: end: 20081128
  8. REMICADE [Suspect]
     Route: 042
     Dates: end: 20081128
  9. REMICADE [Suspect]
     Route: 042
     Dates: end: 20081128
  10. REMICADE [Suspect]
     Route: 042
     Dates: end: 20081128
  11. LOXONIN [Concomitant]
     Route: 048
  12. MUCOSTA [Concomitant]
     Route: 048
  13. METOLATE [Concomitant]
     Route: 048
  14. FOLIAMIN [Concomitant]
     Dosage: DOSE: 1T
     Route: 048
  15. TAKEPRON [Concomitant]
     Route: 048
  16. ISCOTIN [Concomitant]
     Route: 048
  17. ALLEGRA [Concomitant]
     Route: 048
  18. VOLTAREN [Concomitant]
     Route: 054
  19. MOHRUS [Concomitant]

REACTIONS (5)
  - BENIGN SALIVARY GLAND NEOPLASM [None]
  - BUNDLE BRANCH BLOCK RIGHT [None]
  - CARDIAC FAILURE [None]
  - HEPATIC NEOPLASM MALIGNANT [None]
  - HEPATITIS [None]
